FAERS Safety Report 6196368-9 (Version None)
Quarter: 2009Q2

REPORT INFORMATION
  Report Type: 
  Country: None (occurrence: None)
  Receive Date: 20090520
  Receipt Date: 20090512
  Transmission Date: 20091009
  Serious: Yes (Hospitalization)
  Sender: FDA-Public Use
  Company Number: DE-BRISTOL-MYERS SQUIBB COMPANY-14628671

PATIENT
  Age: 58 Year
  Sex: Male

DRUGS (3)
  1. CETUXIMAB [Suspect]
     Indication: GASTROOESOPHAGEAL CANCER
     Dosage: CETUXIMAB 5 MG/ML RECENT INFUSION : 16APR09
     Route: 042
     Dates: start: 20090326
  2. CISPLATIN [Suspect]
     Indication: GASTROOESOPHAGEAL CANCER
     Dosage: DAY 1 OF CYCLE. RECENT INFUSION: 16APR09
     Route: 042
     Dates: start: 20090326
  3. XELODA [Suspect]
     Indication: GASTROOESOPHAGEAL CANCER
     Dosage: FORM = TAB ON DAY 1-15. RECENT ADMINISTRATION: 16APR09
     Route: 048
     Dates: start: 20090326

REACTIONS (2)
  - DEEP VEIN THROMBOSIS [None]
  - PULMONARY EMBOLISM [None]
